FAERS Safety Report 17447286 (Version 1)
Quarter: 2020Q1

REPORT INFORMATION
  Report Type: Spontaneous
  Country: AU (occurrence: AU)
  Receive Date: 20200221
  Receipt Date: 20200221
  Transmission Date: 20200409
  Serious: Yes (Other)
  Sender: FDA-Public Use
  Company Number: NVSC2020AU048953

PATIENT
  Age: 67 Year
  Sex: Female

DRUGS (2)
  1. DABRAFENIB [Suspect]
     Active Substance: DABRAFENIB
     Indication: DISSEMINATED INTRAVASCULAR COAGULATION
     Dosage: 150 MG, BID
     Route: 065
  2. TRAMETINIB [Suspect]
     Active Substance: TRAMETINIB
     Indication: DISSEMINATED INTRAVASCULAR COAGULATION
     Dosage: 2 MG, QD
     Route: 065

REACTIONS (4)
  - Disseminated intravascular coagulation [Unknown]
  - Disease progression [Unknown]
  - Haematoma [Unknown]
  - Product use in unapproved indication [Unknown]
